FAERS Safety Report 20996868 (Version 1)
Quarter: 2022Q2

REPORT INFORMATION
  Report Type: Spontaneous
  Country: JP (occurrence: None)
  Receive Date: 20220623
  Receipt Date: 20220623
  Transmission Date: 20220721
  Serious: Yes (Other)
  Sender: FDA-Public Use
  Company Number: JP-Orion Corporation ORION PHARMA-ENT 2022-0069

PATIENT
  Sex: Female

DRUGS (1)
  1. ENTACAPONE [Suspect]
     Active Substance: ENTACAPONE
     Indication: Parkinson^s disease
     Route: 048

REACTIONS (5)
  - Dystonia [Unknown]
  - Therapeutic response shortened [Unknown]
  - Pain [Unknown]
  - Dyskinesia [Unknown]
  - Dizziness [Unknown]
